FAERS Safety Report 4408179-2 (Version None)
Quarter: 2004Q3

REPORT INFORMATION
  Report Type: 
  Country: None (occurrence: None)
  Receive Date: 20040722
  Receipt Date: 20040712
  Transmission Date: 20050211
  Serious: Yes (Death, Other)
  Sender: FDA-Public Use
  Company Number: JP-JNJFOC-20040702707

PATIENT
  Age: 64 Year
  Sex: Female

DRUGS (3)
  1. FENTANYL [Suspect]
     Indication: CANCER PAIN
     Dosage: SEE IMAGE
     Route: 062
     Dates: start: 20040201, end: 20040331
  2. FENTANYL [Suspect]
     Indication: CANCER PAIN
     Dosage: SEE IMAGE
     Route: 062
     Dates: start: 20040401, end: 20040424
  3. MORPHINE [Concomitant]

REACTIONS (5)
  - CHEST DISCOMFORT [None]
  - DRUG DEPENDENCE [None]
  - MALIGNANT NEOPLASM PROGRESSION [None]
  - OVERDOSE [None]
  - RESPIRATORY DEPRESSION [None]
